FAERS Safety Report 10302080 (Version 2)
Quarter: 2014Q3

REPORT INFORMATION
  Report Type: Spontaneous
  Country: BE (occurrence: BE)
  Receive Date: 20140714
  Receipt Date: 20140714
  Transmission Date: 20150326
  Serious: Yes (Other)
  Sender: FDA-Public Use
  Company Number: PHHY2014BE043354

PATIENT
  Age: 24 Year
  Sex: Female

DRUGS (10)
  1. PERINDOPRIL [Suspect]
     Active Substance: PERINDOPRIL
  2. ALPRAZOLAM. [Suspect]
     Active Substance: ALPRAZOLAM
  3. TETRAZEPAM [Suspect]
     Active Substance: TETRAZEPAM
  4. SOTALOL. [Suspect]
     Active Substance: SOTALOL
  5. PROPRANOLOL [Suspect]
     Active Substance: PROPRANOLOL\PROPRANOLOL HYDROCHLORIDE
  6. ENALAPRIL [Suspect]
     Active Substance: ENALAPRIL
  7. LISINOPRIL. [Suspect]
     Active Substance: LISINOPRIL
  8. BISOPROLOL [Suspect]
     Active Substance: BISOPROLOL
  9. METOPROLOL [Suspect]
     Active Substance: METOPROLOL
  10. LORMETAZEPAM [Suspect]
     Active Substance: LORMETAZEPAM

REACTIONS (7)
  - Drug hypersensitivity [Unknown]
  - Localised oedema [Unknown]
  - Erythema [Unknown]
  - Blepharitis [Unknown]
  - Pruritus [Unknown]
  - Skin exfoliation [Unknown]
  - Accidental exposure to product [Unknown]

NARRATIVE: CASE EVENT DATE: 201208
